FAERS Safety Report 14264253 (Version 1)
Quarter: 2017Q4

REPORT INFORMATION
  Report Type: Spontaneous
  Country: SA (occurrence: SA)
  Receive Date: 20171208
  Receipt Date: 20171208
  Transmission Date: 20180321
  Serious: Yes (Death)
  Sender: FDA-Public Use
  Company Number: SA-BAYER-2017-230934

PATIENT
  Sex: Male

DRUGS (1)
  1. STIVARGA [Suspect]
     Active Substance: REGORAFENIB
     Indication: COLORECTAL CANCER METASTATIC
     Dosage: DAILY DOSE 160 MG FOR 3 WEEKS ON, 1 WEEK BREAK

REACTIONS (2)
  - Death [Fatal]
  - Palmar-plantar erythrodysaesthesia syndrome [None]
